FAERS Safety Report 24736014 (Version 2)
Quarter: 2025Q1

REPORT INFORMATION
  Report Type: Spontaneous
  Country: US (occurrence: US)
  Receive Date: 20241216
  Receipt Date: 20250103
  Transmission Date: 20250409
  Serious: Yes (Other)
  Sender: SUNOVION
  Company Number: US-SMPA-2024SPA006129

PATIENT

DRUGS (1)
  1. MYFEMBREE [Suspect]
     Active Substance: ESTRADIOL HEMIHYDRATE\NORETHINDRONE ACETATE\RELUGOLIX
     Indication: Heavy menstrual bleeding
     Route: 048

REACTIONS (14)
  - Heavy menstrual bleeding [Unknown]
  - Pain [Unknown]
  - Spinal osteoarthritis [Unknown]
  - Urinary incontinence [Unknown]
  - Anal incontinence [Unknown]
  - Nightmare [Not Recovered/Not Resolved]
  - Tooth fracture [Unknown]
  - Sleep disorder [Unknown]
  - Bruxism [Unknown]
  - Unevaluable event [Unknown]
  - Feeding disorder [Unknown]
  - Bone loss [Unknown]
  - Back disorder [Unknown]
  - Night sweats [Unknown]
